FAERS Safety Report 9836463 (Version 4)
Quarter: 2014Q1

REPORT INFORMATION
  Report Type: Report from Study
  Country: CA (occurrence: CA)
  Receive Date: 20140123
  Receipt Date: 20140204
  Transmission Date: 20141002
  Serious: Yes (Other)
  Sender: FDA-Public Use
  Company Number: CA-ROCHE-1332261

PATIENT
  Age: 65 Year
  Sex: Female
  Weight: 73.5 kg

DRUGS (8)
  1. RITUXAN [Suspect]
     Indication: IMMUNE THROMBOCYTOPENIC PURPURA
     Route: 042
     Dates: start: 20140103
  2. DIPHENHYDRAMINE HCL [Concomitant]
     Indication: PREMEDICATION
     Route: 048
     Dates: start: 20140103
  3. ACETAMINOPHEN [Concomitant]
     Indication: PREMEDICATION
     Route: 048
     Dates: start: 20140103
  4. METHYLPREDNISOLONE [Concomitant]
     Indication: PREMEDICATION
     Route: 042
     Dates: start: 20140103
  5. GLYBURIDE [Concomitant]
  6. TYLENOL [Concomitant]
     Route: 065
  7. AMLODIPINE [Concomitant]
     Indication: HYPERTENSION
  8. METFORMIN HYDROCHLORIDE [Concomitant]

REACTIONS (12)
  - Myalgia [Recovered/Resolved]
  - Platelet count decreased [Unknown]
  - Local swelling [Unknown]
  - Muscle spasms [Recovered/Resolved]
  - Sinus congestion [Recovered/Resolved]
  - Tongue eruption [Recovered/Resolved]
  - Muscle twitching [Recovered/Resolved]
  - Neck pain [Unknown]
  - Headache [Unknown]
  - Off label use [Unknown]
  - Implant site pain [Not Recovered/Not Resolved]
  - Blood pressure increased [Unknown]
